FAERS Safety Report 10153838 (Version 1)
Quarter: 2014Q2

REPORT INFORMATION
  Report Type: Spontaneous
  Country: JP (occurrence: JP)
  Receive Date: 20140506
  Receipt Date: 20140506
  Transmission Date: 20141212
  Serious: Yes (Hospitalization, Other)
  Sender: FDA-Public Use
  Company Number: JP-PFIZER INC-2014121384

PATIENT
  Age: 64 Year
  Sex: Male
  Weight: 72 kg

DRUGS (28)
  1. BAYASPIRIN [Concomitant]
     Dosage: UNK
     Dates: start: 20060202, end: 20140416
  2. HIRUDOID [Concomitant]
     Dosage: UNK
     Dates: start: 20130919
  3. OLMETEC [Concomitant]
     Dosage: UNK
     Dates: start: 20131205
  4. MAGMITT [Concomitant]
     Dosage: UNK
     Dates: start: 20131212
  5. MOHRUS TAPE [Concomitant]
     Dosage: UNK
     Dates: start: 20140317
  6. LANSOPRAZOLE [Concomitant]
     Dosage: UNK
     Dates: start: 20140325
  7. IRINOTECAN HCL [Suspect]
     Indication: COLORECTAL CANCER
     Dosage: 336 MG/KG, 1X/DAY
     Route: 041
     Dates: start: 20140210, end: 20140210
  8. IRINOTECAN HCL [Suspect]
     Dosage: 336.6 MG/KG, 1X/DAY
     Route: 041
     Dates: start: 20140224, end: 20140224
  9. IRINOTECAN HCL [Suspect]
     Dosage: 336.6 MG/KG, 1X/DAY
     Route: 041
     Dates: start: 20140317, end: 20140317
  10. IRINOTECAN HCL [Suspect]
     Dosage: 336.6 MG/KG, 1X/DAY
     Route: 041
     Dates: start: 20140414, end: 20140414
  11. LEVOLEUCOVORIN CALCIUM [Suspect]
     Indication: COLORECTAL CANCER
     Dosage: 374 MG/KG, 1X/DAY
     Route: 041
     Dates: start: 20140210, end: 20140210
  12. LEVOLEUCOVORIN CALCIUM [Suspect]
     Dosage: 374 MG/KG, 1X/DAY
     Route: 041
     Dates: start: 20140224, end: 20140224
  13. LEVOLEUCOVORIN CALCIUM [Suspect]
     Dosage: 374 MG/KG, 1X/DAY
     Route: 041
     Dates: start: 20140317, end: 20140317
  14. LEVOLEUCOVORIN CALCIUM [Suspect]
     Dosage: 374 MG/KG, 1X/DAY
     Route: 041
     Dates: start: 20140414, end: 20140414
  15. 5-FU [Suspect]
     Indication: COLORECTAL CANCER
     Dosage: 748 MG/KG, 1X/DAY
     Route: 040
     Dates: start: 20140210, end: 20140210
  16. 5-FU [Suspect]
     Dosage: 4488 MG, DAY 1-2
     Route: 041
     Dates: start: 20140210, end: 20140210
  17. 5-FU [Suspect]
     Dosage: 748 MG/KG, 1X/DAY
     Route: 040
     Dates: start: 20140224, end: 20140224
  18. 5-FU [Suspect]
     Dosage: 4488 MG/KG, DAY 1-2
     Route: 041
     Dates: start: 20140224, end: 20140224
  19. 5-FU [Suspect]
     Dosage: 748 MG/KG, DAY 1-2
     Route: 040
     Dates: start: 20140317, end: 20140317
  20. 5-FU [Suspect]
     Dosage: 4488 MG/KG, DAY 1-2
     Route: 041
     Dates: start: 20140317, end: 20140317
  21. 5-FU [Suspect]
     Dosage: 748 MG/KG, 1X/DAY
     Route: 040
     Dates: start: 20140414, end: 20140414
  22. 5-FU [Suspect]
     Dosage: 4488 MG/KG, DAY 1-2
     Route: 041
     Dates: start: 20140414, end: 20140414
  23. AVE0005 [Suspect]
     Indication: COLORECTAL CANCER
     Dosage: 4 MG/KG, 1X/DAY
     Route: 041
     Dates: start: 20140210, end: 20140210
  24. AVE0005 [Suspect]
     Dosage: 4 MG/KG, 1X/DAY
     Route: 041
     Dates: start: 20140224, end: 20140224
  25. AVE0005 [Suspect]
     Dosage: 4 MG/KG, 1X/DAY
     Route: 041
     Dates: start: 20140317, end: 20140317
  26. AVE0005 [Suspect]
     Dosage: 4 MG/KG, 1X/DAY
     Route: 041
     Dates: start: 20140414, end: 20140414
  27. LIPOVAS [Concomitant]
     Dosage: UNK
     Dates: start: 20030730
  28. ARTIST [Concomitant]
     Dosage: UNK
     Dates: start: 20051026

REACTIONS (5)
  - Deep vein thrombosis [Not Recovered/Not Resolved]
  - Pulmonary embolism [Not Recovered/Not Resolved]
  - Leukopenia [Unknown]
  - Neutropenia [Unknown]
  - Cholangitis [Unknown]
